FAERS Safety Report 5123604-X (Version None)
Quarter: 2006Q4

REPORT INFORMATION
  Report Type: 
  Country: None (occurrence: None)
  Receive Date: 20061010
  Receipt Date: 20060916
  Transmission Date: 20070319
  Serious: Yes (Life-Threatening, Other)
  Sender: FDA-Public Use
  Company Number: TN-BAYER-200614230GDS

PATIENT
  Age: 45 Year
  Sex: Male
  Weight: 45 kg

DRUGS (5)
  1. CIFLOX [Suspect]
     Indication: DRUG USE FOR UNKNOWN INDICATION
     Dosage: UNIT DOSE: 400 MG
     Route: 042
     Dates: start: 20060910, end: 20060913
  2. CIFLOX [Suspect]
     Dosage: UNIT DOSE: 400 MG
     Route: 042
     Dates: start: 20060916
  3. TAZOCILLINE [Suspect]
     Indication: DRUG USE FOR UNKNOWN INDICATION
     Route: 065
     Dates: start: 20060910, end: 20060916
  4. FORTUM [Concomitant]
     Indication: DRUG USE FOR UNKNOWN INDICATION
     Route: 065
  5. FLAGYL [Concomitant]
     Indication: DRUG USE FOR UNKNOWN INDICATION
     Route: 065

REACTIONS (7)
  - COMA [None]
  - HALLUCINATION [None]
  - LEUKOPENIA [None]
  - NYSTAGMUS [None]
  - PYREXIA [None]
  - THROMBOCYTOPENIA [None]
  - WEIGHT DECREASED [None]
